FAERS Safety Report 19476588 (Version 1)
Quarter: 2021Q2

REPORT INFORMATION
  Report Type: Spontaneous
  Country: IN (occurrence: IN)
  Receive Date: 20210630
  Receipt Date: 20210630
  Transmission Date: 20210717
  Serious: Yes (Life-Threatening, Hospitalization, Other)
  Sender: FDA-Public Use
  Company Number: IN-GRANULES-IN-2021GRALIT00366

PATIENT
  Age: 18 Month
  Sex: Male
  Weight: 10 kg

DRUGS (9)
  1. SALINE [SODIUM CHLORIDE] [Interacting]
     Active Substance: SODIUM CHLORIDE
     Indication: INTRACRANIAL PRESSURE INCREASED
     Route: 065
  2. N?ACETYLCYSTEINE [Interacting]
     Active Substance: ACETYLCYSTEINE
     Route: 065
  3. N?ACETYLCYSTEINE [Interacting]
     Active Substance: ACETYLCYSTEINE
     Indication: PRODUCT USED FOR UNKNOWN INDICATION
     Route: 065
  4. ACETAMINOPHEN. [Suspect]
     Active Substance: ACETAMINOPHEN
     Indication: PRODUCT USED FOR UNKNOWN INDICATION
     Dosage: 5 ML DROPS OF ACETAMINOPHEN (1 ML=100 MG)
     Route: 065
  5. GLUCOSE [Interacting]
     Active Substance: DEXTROSE
     Indication: PRODUCT USED FOR UNKNOWN INDICATION
     Route: 065
  6. RIFAXIMIN. [Interacting]
     Active Substance: RIFAXIMIN
     Indication: PRODUCT USED FOR UNKNOWN INDICATION
     Route: 065
  7. LACTULOSE. [Interacting]
     Active Substance: LACTULOSE
     Indication: PRODUCT USED FOR UNKNOWN INDICATION
     Route: 065
  8. N?ACETYLCYSTEINE [Interacting]
     Active Substance: ACETYLCYSTEINE
     Route: 065
  9. SODIUM BENZOATE [Interacting]
     Active Substance: SODIUM BENZOATE
     Indication: PRODUCT USED FOR UNKNOWN INDICATION
     Route: 065

REACTIONS (4)
  - Medication error [Recovered/Resolved]
  - Accidental overdose [Recovered/Resolved]
  - Acute hepatic failure [Recovered/Resolved]
  - Toxicity to various agents [Recovered/Resolved]
